FAERS Safety Report 5371229-3 (Version None)
Quarter: 2007Q2

REPORT INFORMATION
  Report Type: 
  Country: None (occurrence: None)
  Receive Date: 20070626
  Receipt Date: 20070622
  Transmission Date: 20071010
  Serious: Yes (Death)
  Sender: FDA-Public Use
  Company Number: US-GENENTECH-242970

PATIENT
  Sex: Female
  Weight: 66 kg

DRUGS (9)
  1. ACTIVASE [Suspect]
     Indication: ISCHAEMIC STROKE
     Dosage: 6.7 MG, UNK
     Route: 040
     Dates: start: 20070610
  2. ACTIVASE [Suspect]
     Dosage: 66 MG, UNK
     Route: 042
     Dates: start: 20070610
  3. PLAVIX [Concomitant]
     Indication: PROPHYLAXIS
  4. ASPIRIN [Concomitant]
     Indication: PROPHYLAXIS
  5. LIPITOR [Concomitant]
     Indication: DRUG USE FOR UNKNOWN INDICATION
  6. SYNTHROID [Concomitant]
     Indication: DRUG USE FOR UNKNOWN INDICATION
  7. DIOVAN [Concomitant]
     Indication: DRUG USE FOR UNKNOWN INDICATION
  8. HYDROCHLOROTHIAZIDE [Concomitant]
     Indication: DRUG USE FOR UNKNOWN INDICATION
  9. SULAR [Concomitant]
     Indication: DRUG USE FOR UNKNOWN INDICATION

REACTIONS (2)
  - DEATH [None]
  - HAEMORRHAGE INTRACRANIAL [None]
